FAERS Safety Report 14870703 (Version 3)
Quarter: 2019Q1

REPORT INFORMATION
  Report Type: Spontaneous
  Country: SE (occurrence: SE)
  Receive Date: 20180509
  Receipt Date: 20190109
  Transmission Date: 20190417
  Serious: Yes (Hospitalization, Other)
  Sender: FDA-Public Use
  Company Number: SE-BRISTOL-MYERS SQUIBB COMPANY-BMS-2018-041363

PATIENT
  Age: 60 Year
  Sex: Female

DRUGS (4)
  1. IBUPROFEN. [Suspect]
     Active Substance: IBUPROFEN
     Indication: HYPERTONIA
     Route: 065
  2. METFORMIN HYDROCHLORIDE. [Suspect]
     Active Substance: METFORMIN HYDROCHLORIDE
     Indication: DIABETES MELLITUS
     Route: 065
  3. IBUPROFEN. [Suspect]
     Active Substance: IBUPROFEN
     Indication: PAIN
     Dosage: 800 MG, Q12H
     Route: 065
  4. POVIDONE [Suspect]
     Active Substance: POVIDONE
     Indication: COMPUTERISED TOMOGRAM
     Route: 042

REACTIONS (7)
  - Blood creatinine increased [Recovering/Resolving]
  - Urine output decreased [Recovering/Resolving]
  - Vomiting [Recovering/Resolving]
  - Deep vein thrombosis [Unknown]
  - Acute kidney injury [Not Recovered/Not Resolved]
  - Proteinuria [Recovering/Resolving]
  - Nausea [Recovering/Resolving]
